FAERS Safety Report 4277466-3 (Version None)
Quarter: 2004Q1

REPORT INFORMATION
  Report Type: 
  Country: None (occurrence: None)
  Receive Date: 20040122
  Receipt Date: 20031112
  Transmission Date: 20041129
  Serious: Yes (Hospitalization)
  Sender: FDA-Public Use
  Company Number: AU-ROCHE-356375

PATIENT
  Age: 82 Year
  Sex: Male

DRUGS (9)
  1. CALCITRIOL [Suspect]
     Indication: DRUG USE FOR UNKNOWN INDICATION
     Route: 065
     Dates: start: 20030211
  2. PERINDOPRIL [Suspect]
     Route: 065
     Dates: start: 20030211
  3. INDAPAMIDE [Suspect]
     Route: 065
     Dates: start: 20030211
  4. ATENOLOL [Concomitant]
  5. CLOPIDOGREL [Concomitant]
  6. RANITIDINE [Concomitant]
  7. MADOPAR [Concomitant]
  8. ADALAT [Concomitant]
  9. THYROXINE [Concomitant]

REACTIONS (3)
  - HYPERCALCAEMIA [None]
  - MYOPATHY [None]
  - RENAL FAILURE ACUTE [None]
